FAERS Safety Report 13341150 (Version 2)
Quarter: 2017Q1

REPORT INFORMATION
  Report Type: Spontaneous
  Country: IT (occurrence: IT)
  Receive Date: 20170316
  Receipt Date: 20170322
  Transmission Date: 20170428
  Serious: Yes (Hospitalization)
  Sender: FDA-Public Use
  Company Number: IT-TEVA-749181ACC

PATIENT
  Age: 75 Year
  Sex: Female

DRUGS (4)
  1. METHYLPREDNISOLONE? [Concomitant]
     Indication: PRODUCT USED FOR UNKNOWN INDICATION
  2. IMMUNOGLOBULIN HUMAN? [Concomitant]
     Indication: PRODUCT USED FOR UNKNOWN INDICATION
  3. PIPERACILLIN AND TAZOBACTAM [Concomitant]
     Active Substance: PIPERACILLIN SODIUM\TAZOBACTAM SODIUM
     Indication: PRODUCT USED FOR UNKNOWN INDICATION
  4. FLUCONAZOLE. [Suspect]
     Active Substance: FLUCONAZOLE
     Indication: CANDIDA INFECTION
     Dosage: 100 MILLIGRAM DAILY;
     Route: 048

REACTIONS (3)
  - Oesophageal candidiasis [Recovered/Resolved]
  - Systemic candida [Recovered/Resolved]
  - Pneumonitis [Recovered/Resolved]
